FAERS Safety Report 6800969-1 (Version None)
Quarter: 2010Q2

REPORT INFORMATION
  Report Type: 
  Country: None (occurrence: None)
  Receive Date: 20100629
  Receipt Date: 20100617
  Transmission Date: 20101027
  Serious: Yes (Hospitalization)
  Sender: FDA-Public Use
  Company Number: PHEH2010US02022

PATIENT
  Sex: Female
  Weight: 54.43 kg

DRUGS (1)
  1. EXJADE [Suspect]
     Indication: THALASSAEMIA
     Dosage: 500 MG, BID
     Route: 048
     Dates: start: 20091201

REACTIONS (7)
  - DIARRHOEA [None]
  - DRUG DOSE OMISSION [None]
  - FULL BLOOD COUNT DECREASED [None]
  - GASTROINTESTINAL DISORDER [None]
  - NAUSEA [None]
  - URINARY TRACT INFECTION [None]
  - VOMITING [None]
